FAERS Safety Report 7472325 (Version 2)
Quarter: 2020Q3

REPORT INFORMATION
  Report Type: Report from Study
  Country: JP (occurrence: JP)
  Receive Date: 20100714
  Receipt Date: 20100809
  Transmission Date: 20201104
  Serious: Yes (Hospitalization)
  Sender: FDA-Public Use
  Company Number: JP-WYE-H16060510

PATIENT
  Age: 74 Year
  Sex: Female
  Weight: 69 kg

DRUGS (12)
  1. PACLITAXEL. [Suspect]
     Active Substance: PACLITAXEL
     Indication: BREAST CANCER
     Dosage: 80 MG/M^2, ON 16?JUN?2010, 23?JUN?2010, 30?JUN?2010
     Route: 042
     Dates: start: 20100616, end: 20100630
  2. PACLITAXEL. [Suspect]
     Active Substance: PACLITAXEL
     Dosage: 80 MG/M^2; FREQUENCY NOT PROVIDED
     Route: 042
     Dates: start: 20100727
  3. LOXOPROFEN SODIUM [Concomitant]
     Active Substance: LOXOPROFEN SODIUM
     Indication: CANCER PAIN
     Dosage: DOSE NOT PROVIDED
     Route: 065
  4. TRASTUZUMAB. [Suspect]
     Active Substance: TRASTUZUMAB
     Indication: BREAST CANCER
     Dosage: ^4 MG/KG TO 2 MG/KG^, WEEKLY
     Route: 042
     Dates: start: 20100616, end: 20100630
  5. TRASTUZUMAB. [Suspect]
     Active Substance: TRASTUZUMAB
     Dosage: ^4MG/KG TO 2 MG/KG^  WEEKLY
     Route: 042
     Dates: start: 20100727
  6. LOPERAMIDE [Concomitant]
     Active Substance: LOPERAMIDE
     Indication: DIARRHOEA
     Dosage: DOSE NOT PROVIDED
     Route: 065
     Dates: start: 20100629
  7. TRIAZOLAM. [Concomitant]
     Active Substance: TRIAZOLAM
     Dosage: NOT PROVIDED
     Route: 065
  8. LAFUTIDINE [Concomitant]
     Active Substance: LAFUTIDINE
     Indication: GASTRITIS PROPHYLAXIS
     Dosage: DOSE NOT PROVIDED
     Route: 065
  9. NIFEDIPINE. [Concomitant]
     Active Substance: NIFEDIPINE
     Indication: HYPERTENSION
     Dosage: DOSE NOT PROVIDED
     Route: 065
  10. SIMVASTATIN. [Concomitant]
     Active Substance: SIMVASTATIN
     Indication: HYPERLIPIDAEMIA
     Dosage: DOSE NOT PROVIDED
     Route: 065
  11. OLANZAPINE. [Concomitant]
     Active Substance: OLANZAPINE
     Dosage: DOSE NOT PROVIDED
     Route: 065
  12. CILOSTAZOL. [Concomitant]
     Active Substance: CILOSTAZOL
     Dosage: DOSE NOT PROVIDED
     Route: 065

REACTIONS (3)
  - Ileus [Recovered/Resolved]
  - Pneumonia aspiration [Recovered/Resolved]
  - Dehydration [Recovered/Resolved]

NARRATIVE: CASE EVENT DATE: 20100708
